FAERS Safety Report 5270539-8 (Version None)
Quarter: 2007Q1

REPORT INFORMATION
  Report Type: 
  Country: None (occurrence: None)
  Receive Date: 20070315
  Receipt Date: 20070305
  Transmission Date: 20070707
  Serious: Yes (Hospitalization)
  Sender: FDA-Public Use
  Company Number: 2007SP000782

PATIENT
  Age: 35 Year
  Sex: Female
  Weight: 63.5036 kg

DRUGS (5)
  1. LUNESTA [Suspect]
     Indication: SLEEP DISORDER
     Dosage: 3 MG; PRN; ORAL
     Route: 048
     Dates: start: 20060201, end: 20070211
  2. CEFTIN [Concomitant]
  3. PREDNISONE [Concomitant]
  4. PULMICORT [Concomitant]
  5. ORTHO TRI-CYCLEN [Concomitant]

REACTIONS (5)
  - BRADYCARDIA [None]
  - FALL [None]
  - HYPOTENSION [None]
  - LOSS OF CONSCIOUSNESS [None]
  - MIDDLE INSOMNIA [None]
